FAERS Safety Report 11234431 (Version 1)
Quarter: 2015Q3

REPORT INFORMATION
  Report Type: Spontaneous
  Country: ES (occurrence: ES)
  Receive Date: 20150702
  Receipt Date: 20150702
  Transmission Date: 20151125
  Serious: Yes (Hospitalization)
  Sender: FDA-Public Use
  Company Number: ES-SA-2015SA092252

PATIENT
  Age: 54 Year
  Sex: Female

DRUGS (7)
  1. ACICLOVIR [Concomitant]
     Active Substance: ACYCLOVIR
     Indication: STOMATITIS
  2. URBASON [Concomitant]
     Active Substance: METHYLPREDNISOLONE
     Indication: PROPHYLAXIS
  3. RANITIDINE [Concomitant]
     Active Substance: RANITIDINE\RANITIDINE HYDROCHLORIDE
  4. THYMOGLOBULIN [Suspect]
     Active Substance: LAPINE T-LYMPHOCYTE IMMUNE GLOBULIN
     Indication: MYELODYSPLASTIC SYNDROME
     Route: 042
     Dates: start: 20150604, end: 20150607
  5. AUGMENTINE [Concomitant]
     Active Substance: AMOXICILLIN\CLAVULANATE POTASSIUM
     Indication: STOMATITIS
  6. SANDIMMUN [Concomitant]
     Active Substance: CYCLOSPORINE
     Dates: start: 201503
  7. DIFLUCAN [Concomitant]
     Active Substance: FLUCONAZOLE
     Indication: STOMATITIS

REACTIONS (4)
  - Bradycardia [Unknown]
  - Groin pain [Unknown]
  - Somnolence [Unknown]
  - Arthralgia [Not Recovered/Not Resolved]

NARRATIVE: CASE EVENT DATE: 20150605
